FAERS Safety Report 10399931 (Version 1)
Quarter: 2014Q3

REPORT INFORMATION
  Report Type: Spontaneous
  Country: US (occurrence: US)
  Receive Date: 20140821
  Receipt Date: 20140821
  Transmission Date: 20150326
  Serious: Yes (Other)
  Sender: FDA-Public Use
  Company Number: US-SA-2014SA110586

PATIENT
  Age: 15 Year
  Sex: Female

DRUGS (2)
  1. RASBURICASE [Suspect]
     Active Substance: RASBURICASE
     Indication: BLOOD URIC ACID INCREASED
     Route: 065
  2. RASBURICASE [Suspect]
     Active Substance: RASBURICASE
     Indication: BLOOD URIC ACID INCREASED
     Route: 065

REACTIONS (3)
  - Respiratory distress [Unknown]
  - Haemolysis [Unknown]
  - Methaemoglobinaemia [Unknown]
